FAERS Safety Report 19463377 (Version 1)
Quarter: 2021Q2

REPORT INFORMATION
  Report Type: Spontaneous
  Country: US (occurrence: US)
  Receive Date: 20210625
  Receipt Date: 20210625
  Transmission Date: 20210717
  Serious: Yes (Other)
  Sender: FDA-Public Use
  Company Number: US-ALLERGAN-2123971US

PATIENT
  Sex: Female

DRUGS (2)
  1. NORETHINDRONE;ETHINYLESTRADIOL;FERROUS FUMARATE UNK [Suspect]
     Active Substance: ETHINYL ESTRADIOL\NORETHINDRONE
     Indication: HAEMOPTYSIS
     Dosage: UNK
     Route: 048
  2. VITAMIN K [Concomitant]
     Active Substance: PHYTONADIONE
     Indication: HAEMOSTASIS
     Dosage: 5 MG THREE TIMES PER WEEK

REACTIONS (3)
  - Off label use [Unknown]
  - Pulmonary embolism [Recovered/Resolved]
  - Drug ineffective for unapproved indication [Unknown]
